FAERS Safety Report 10839454 (Version 1)
Quarter: 2015Q1

REPORT INFORMATION
  Report Type: Report from Study
  Country: US (occurrence: US)
  Receive Date: 20150220
  Receipt Date: 20150220
  Transmission Date: 20150721
  Serious: Yes (Other)
  Sender: FDA-Public Use
  Company Number: US-ABBVIE-14P-163-1240917-00

PATIENT
  Age: 47 Year
  Sex: Female

DRUGS (1)
  1. HUMIRA [Suspect]
     Active Substance: ADALIMUMAB
     Indication: COLITIS ULCERATIVE
     Dates: start: 20140314, end: 201404

REACTIONS (10)
  - Unevaluable event [Unknown]
  - Diarrhoea [Unknown]
  - Myalgia [Unknown]
  - Faecal incontinence [Unknown]
  - Antineutrophil cytoplasmic antibody [Unknown]
  - Insomnia [Unknown]
  - Arthralgia [Unknown]
  - Autoantibody positive [Unknown]
  - Drug specific antibody present [Unknown]
  - Fatigue [Unknown]

NARRATIVE: CASE EVENT DATE: 201404
